FAERS Safety Report 7106339-3 (Version None)
Quarter: 2010Q4

REPORT INFORMATION
  Report Type: 
  Country: None (occurrence: None)
  Receive Date: 20101116
  Receipt Date: 20101020
  Transmission Date: 20110411
  Serious: Yes (Other)
  Sender: FDA-Public Use
  Company Number: US-ROCHE-741413

PATIENT

DRUGS (1)
  1. BONIVA [Suspect]
     Route: 065

REACTIONS (1)
  - PARALYSIS [None]
